FAERS Safety Report 4666497-7 (Version None)
Quarter: 2005Q2

REPORT INFORMATION
  Report Type: 
  Country: None (occurrence: None)
  Receive Date: 20050518
  Receipt Date: 20050503
  Transmission Date: 20051028
  Serious: Yes (Hospitalization)
  Sender: FDA-Public Use
  Company Number: 20050023USST

PATIENT
  Sex: Male

DRUGS (1)
  1. CARNITOR                     (LEVOCARNITINE) [Suspect]
     Indication: CARNITINE DEFICIENCY
     Dosage: 3 AMPOULES

REACTIONS (2)
  - METABOLIC ACIDOSIS [None]
  - POOR QUALITY DRUG ADMINISTERED [None]
